FAERS Safety Report 5567677-9 (Version None)
Quarter: 2007Q4

REPORT INFORMATION
  Report Type: 
  Country: None (occurrence: None)
  Receive Date: 20071214
  Receipt Date: 20071130
  Transmission Date: 20080405
  Serious: Yes (Hospitalization)
  Sender: FDA-Public Use
  Company Number: 2007002357

PATIENT
  Age: 80 Year
  Sex: Male

DRUGS (2)
  1. ERLOTINIB (ERLOTINIB HCL) (TABLET) (ERLOTINIB HCL) [Suspect]
     Indication: LUNG NEOPLASM MALIGNANT
     Dosage: (100 MG, QD), ORAL
     Route: 048
  2. GEMCITABINE [Suspect]
     Dosage: (1000 MG/M2), INTRAVENOUS
     Route: 042

REACTIONS (4)
  - ANAEMIA [None]
  - ASTHENIA [None]
  - FATIGUE [None]
  - NAUSEA [None]
